FAERS Safety Report 4437436-9 (Version None)
Quarter: 2004Q3

REPORT INFORMATION
  Report Type: 
  Country: None (occurrence: None)
  Receive Date: 20040830
  Receipt Date: 20040826
  Transmission Date: 20050211
  Serious: Yes (Other)
  Sender: FDA-Public Use
  Company Number: PHBS2004CA11338

PATIENT
  Sex: Male

DRUGS (4)
  1. DIOVAN [Suspect]
     Dosage: 80 MG, QD
     Route: 048
     Dates: end: 20040601
  2. DIOVAN [Suspect]
     Dosage: 160 MG, QD
     Route: 048
     Dates: start: 20040601
  3. ASAPHEN [Concomitant]
  4. LIPITOR [Concomitant]

REACTIONS (3)
  - DIVERTICULITIS INTESTINAL HAEMORRHAGIC [None]
  - DIZZINESS [None]
  - FLATULENCE [None]
